FAERS Safety Report 6890697-9 (Version None)
Quarter: 2010Q3

REPORT INFORMATION
  Report Type: 
  Country: None (occurrence: None)
  Receive Date: 20100731
  Receipt Date: 20090216
  Transmission Date: 20110219
  Serious: No
  Sender: FDA-Public Use
  Company Number: US-PFIZER INC-2004011818

PATIENT
  Sex: Female
  Weight: 63.5 kg

DRUGS (2)
  1. LIPITOR [Suspect]
     Indication: BLOOD CHOLESTEROL ABNORMAL
     Dosage: 20 MG, 1X/DAY
     Route: 048
     Dates: start: 20030101
  2. VITAMINS [Concomitant]
     Dosage: UNK

REACTIONS (2)
  - ALOPECIA [None]
  - AMNESIA [None]
